FAERS Safety Report 6128504-4 (Version None)
Quarter: 2009Q1

REPORT INFORMATION
  Report Type: 
  Country: None (occurrence: None)
  Receive Date: 20090319
  Receipt Date: 20090305
  Transmission Date: 20090719
  Serious: Yes (Hospitalization)
  Sender: FDA-Public Use
  Company Number: 02100-JPN-06-0452

PATIENT
  Age: 58 Year
  Sex: Female

DRUGS (10)
  1. PLETAL [Suspect]
     Indication: CEREBRAL ARTERY STENOSIS
     Dosage: 100 MG, BID
     Route: 048
     Dates: start: 20060629, end: 20060920
  2. ASPIRIN [Concomitant]
  3. CITICOLINE SODIUM (CITICOLINE SODIUM) [Concomitant]
  4. ANYTAL TRIPLE LAYER (MADE BY ANGOOK) (ANYTAL TRIPLE LAYER) (MADE BY AN [Concomitant]
  5. SIMVASTATIN [Concomitant]
  6. EZETIMIBE [Concomitant]
  7. DIAZEPAM [Concomitant]
  8. KETOTIFEN FUMARATE (KETOTIFEN FUMARATE) [Concomitant]
  9. GLIMEPIRIDE [Concomitant]
  10. METFORMIN HCL [Concomitant]

REACTIONS (2)
  - DRUG INEFFECTIVE [None]
  - TRANSIENT ISCHAEMIC ATTACK [None]
